FAERS Safety Report 6710338-0 (Version None)
Quarter: 2010Q2

REPORT INFORMATION
  Report Type: 
  Country: None (occurrence: None)
  Receive Date: 20100504
  Receipt Date: 20100422
  Transmission Date: 20101027
  Serious: Yes (Hospitalization, Other)
  Sender: FDA-Public Use
  Company Number: PHHY2010US01053

PATIENT
  Age: 12 Year
  Sex: Male

DRUGS (4)
  1. CYCLOSPORINE [Suspect]
     Indication: HEART TRANSPLANT
  2. MYCOPHENOLATE MOFETIL [Suspect]
     Indication: HEART TRANSPLANT
  3. SULFAMETHOXAZOLE AND TRIMETHOPRIM [Suspect]
     Indication: HEART TRANSPLANT
  4. AMOXICILLIN [Concomitant]

REACTIONS (23)
  - ACUTE RESPIRATORY DISTRESS SYNDROME [None]
  - COUGH [None]
  - DIALYSIS [None]
  - DYSPNOEA [None]
  - EGOBRONCHOPHONY [None]
  - EXTRACORPOREAL MEMBRANE OXYGENATION [None]
  - GENERAL PHYSICAL HEALTH DETERIORATION [None]
  - GINGIVAL HYPERPLASIA [None]
  - H1N1 INFLUENZA [None]
  - HAEMOGLOBIN DECREASED [None]
  - HYPERVENTILATION [None]
  - HYPOXIA [None]
  - LUNG INFILTRATION [None]
  - MECHANICAL VENTILATION [None]
  - OXYGEN SATURATION DECREASED [None]
  - PLATELET COUNT INCREASED [None]
  - PULMONARY PERCUSSION TEST ABNORMALITY [None]
  - PYREXIA [None]
  - RENAL FAILURE ACUTE [None]
  - RESPIRATORY DISTRESS [None]
  - RESPIRATORY RATE INCREASED [None]
  - SUPERINFECTION BACTERIAL [None]
  - TACHYPNOEA [None]
